FAERS Safety Report 5332291-7 (Version None)
Quarter: 2007Q2

REPORT INFORMATION
  Report Type: 
  Country: None (occurrence: None)
  Receive Date: 20070523
  Receipt Date: 20070515
  Transmission Date: 20071010
  Serious: Yes (Life-Threatening)
  Sender: FDA-Public Use
  Company Number: JP-ROCHE-487596

PATIENT
  Age: 29 Year
  Sex: Male
  Weight: 102 kg

DRUGS (3)
  1. PERDIPINE [Suspect]
     Indication: HYPERTENSION
     Dosage: 120 ML DAILY
     Route: 041
     Dates: start: 20070228, end: 20070306
  2. NORVASC [Concomitant]
     Dates: start: 20070306
  3. NU-LOTAN [Concomitant]
     Dates: start: 20070306

REACTIONS (5)
  - ABDOMINAL PAIN [None]
  - BACTERAEMIA [None]
  - DISSEMINATED INTRAVASCULAR COAGULATION [None]
  - HAEMODIALYSIS [None]
  - INFLAMMATORY BOWEL DISEASE [None]
